FAERS Safety Report 4411377-5 (Version None)
Quarter: 2004Q3

REPORT INFORMATION
  Report Type: 
  Country: None (occurrence: None)
  Receive Date: 20040727
  Receipt Date: 20040713
  Transmission Date: 20050211
  Serious: Yes (Life-Threatening)
  Sender: FDA-Public Use
  Company Number: 2004AP02940

PATIENT
  Age: 76 Year
  Sex: Male
  Weight: 56.6 kg

DRUGS (12)
  1. IRESSA [Suspect]
     Indication: ADENOCARCINOMA
     Dosage: 250 MG DAILY PO
     Route: 048
     Dates: start: 20040519, end: 20040528
  2. IRESSA [Suspect]
     Indication: NON-SMALL CELL LUNG CANCER
     Dosage: 250 MG DAILY PO
     Route: 048
     Dates: start: 20040519, end: 20040528
  3. CIPROXAN [Suspect]
     Indication: PNEUMONIA
     Dosage: 600 MG DAILY IVD
     Dates: start: 20040522, end: 20040528
  4. KADIAN ^KNOLL^ [Concomitant]
  5. MEROPENEM [Concomitant]
  6. SUNRYTHM [Concomitant]
  7. NAIXAN [Concomitant]
  8. MUCOSTA [Concomitant]
  9. MUCOSOLVAN [Concomitant]
  10. ALBUMIN (HUMAN) [Concomitant]
  11. ASPIRIN [Concomitant]
  12. RADIOTHERAPY [Concomitant]

REACTIONS (5)
  - CYSTITIS HAEMORRHAGIC [None]
  - DEPRESSED LEVEL OF CONSCIOUSNESS [None]
  - HYPOXIA [None]
  - INTERSTITIAL LUNG DISEASE [None]
  - METASTASES TO ADRENALS [None]
